FAERS Safety Report 10053348 (Version 1)
Quarter: 2014Q2

REPORT INFORMATION
  Report Type: Spontaneous
  Country: US (occurrence: US)
  Receive Date: 20140402
  Receipt Date: 20140402
  Transmission Date: 20141212
  Serious: No
  Sender: FDA-Public Use
  Company Number: US-MALLINCKRODT-T201401020

PATIENT
  Age: 51 Year
  Sex: Female

DRUGS (1)
  1. OPTIRAY [Suspect]
     Indication: PRODUCT USED FOR UNKNOWN INDICATION
     Route: 065

REACTIONS (2)
  - Accidental exposure to product [Unknown]
  - Eye irritation [Unknown]
